FAERS Safety Report 4449548-4 (Version None)
Quarter: 2004Q3

REPORT INFORMATION
  Report Type: 
  Country: None (occurrence: None)
  Receive Date: 20040909
  Receipt Date: 20040819
  Transmission Date: 20050211
  Serious: Yes (Hospitalization, Other)
  Sender: FDA-Public Use
  Company Number: USA040362077

PATIENT
  Age: 49 Year
  Sex: Female
  Weight: 55 kg

DRUGS (5)
  1. FORTEO [Suspect]
     Indication: OSTEOPOROSIS
     Dosage: 20 UG/1 DAY
     Dates: start: 20030301
  2. . [Suspect]
  3. SYNTHROID [Concomitant]
  4. PAXIL [Concomitant]
  5. PREMARIN [Concomitant]

REACTIONS (5)
  - BENIGN BONE NEOPLASM [None]
  - HYPOAESTHESIA [None]
  - NERVE INJURY [None]
  - PAIN [None]
  - PHARMACEUTICAL PRODUCT COMPLAINT [None]
